FAERS Safety Report 7984637-9 (Version None)
Quarter: 2011Q4

REPORT INFORMATION
  Report Type: 
  Country: None (occurrence: None)
  Receive Date: 20111216
  Receipt Date: 20111213
  Transmission Date: 20120403
  Serious: Yes (Other)
  Sender: FDA-Public Use
  Company Number: CH-US-EMD SERONO, INC.-7081999

PATIENT
  Sex: Female
  Weight: 75 kg

DRUGS (3)
  1. CONTRACEPTION [Concomitant]
     Indication: CONTRACEPTION
     Route: 048
  2. MEPHADOLOR [Concomitant]
     Indication: HEADACHE
     Route: 048
     Dates: start: 20060801
  3. REBIF [Suspect]
     Indication: MULTIPLE SCLEROSIS
     Route: 058
     Dates: start: 20060801

REACTIONS (1)
  - COLITIS [None]
